FAERS Safety Report 23571591 (Version 4)
Quarter: 2025Q2

REPORT INFORMATION
  Report Type: Spontaneous
  Country: JP (occurrence: JP)
  Receive Date: 20240227
  Receipt Date: 20250603
  Transmission Date: 20250717
  Serious: Yes (Death, Other)
  Sender: ALEXION PHARMACEUTICALS
  Company Number: 2024A047116

PATIENT
  Age: 46 Year
  Weight: 84 kg

DRUGS (7)
  1. IMFINZI [Suspect]
     Active Substance: DURVALUMAB
     Indication: Bile duct cancer
     Dosage: 1500 MILLIGRAM, Q3W
  2. GEMCITABINE [Suspect]
     Active Substance: GEMCITABINE
     Indication: Bile duct cancer
  3. GEMCITABINE [Suspect]
     Active Substance: GEMCITABINE
     Indication: Bile duct cancer
  4. GEMCITABINE [Suspect]
     Active Substance: GEMCITABINE
  5. CISPLATIN [Suspect]
     Active Substance: CISPLATIN
     Indication: Bile duct cancer
  6. CISPLATIN [Suspect]
     Active Substance: CISPLATIN
  7. ENTECAVIR [Concomitant]
     Active Substance: ENTECAVIR

REACTIONS (10)
  - Haemorrhage [Fatal]
  - Septic shock [Fatal]
  - Procedural haemorrhage [Fatal]
  - Pneumonia [Fatal]
  - Infection [Fatal]
  - Circulatory collapse [Not Recovered/Not Resolved]
  - Platelet count decreased [Unknown]
  - Hypoxia [Recovering/Resolving]
  - Coagulopathy [Unknown]
  - Dehydration [Unknown]
